FAERS Safety Report 16809675 (Version 1)
Quarter: 2019Q3

REPORT INFORMATION
  Report Type: Spontaneous
  Country: US (occurrence: US)
  Receive Date: 20190724
  Receipt Date: 20190724
  Transmission Date: 20191005
  Serious: Yes (Other)
  Sender: FDA-Public Use
  Company Number: None

PATIENT
  Age: 57 Year
  Sex: Male
  Weight: 119.75 kg

DRUGS (2)
  1. MULTIVITAMIN [Concomitant]
     Active Substance: VITAMINS
  2. NEOMYCIN AND POLYMYCIN B SULFATES AND DEXAMETHASONE OPTHALMIC OINTMENT [Suspect]
     Active Substance: DEXAMETHASONE\NEOMYCIN\POLYMYXIN B SULFATE
     Indication: EYELID OPERATION
     Dosage: ?          OTHER STRENGTH:3.5-10000-0.1 ;OTHER ROUTE:APPLIED TO THE EYE?
     Dates: start: 20190403, end: 20190410

REACTIONS (3)
  - Retinal detachment [None]
  - Headache [None]
  - Vitreous detachment [None]
